FAERS Safety Report 10196662 (Version 1)
Quarter: 2014Q2

REPORT INFORMATION
  Report Type: Spontaneous
  Country: GB (occurrence: GB)
  Receive Date: 20140527
  Receipt Date: 20140527
  Transmission Date: 20141212
  Serious: Yes (Other)
  Sender: FDA-Public Use
  Company Number: GB-PFIZER INC-2014138562

PATIENT
  Age: 75 Year
  Sex: Male
  Weight: 81.64 kg

DRUGS (5)
  1. IBUPROFEN [Suspect]
     Dosage: UNK
  2. RANOLAZINE [Suspect]
     Indication: ANGINA PECTORIS
     Dosage: 1 DF, 2X/DAY
     Route: 048
  3. LATANOPROST [Concomitant]
  4. METFORMIN [Concomitant]
  5. PARACETAMOL [Concomitant]

REACTIONS (11)
  - Confusional state [Recovered/Resolved]
  - Sleep disorder [Recovered/Resolved]
  - Pallor [Recovered/Resolved]
  - Fatigue [Recovered/Resolved]
  - Anxiety [Recovered/Resolved]
  - Lethargy [Recovering/Resolving]
  - Disorientation [Recovering/Resolving]
  - Abnormal dreams [Recovering/Resolving]
  - Memory impairment [Recovering/Resolving]
  - Personality change [Recovering/Resolving]
  - Hypersensitivity [Unknown]
